FAERS Safety Report 11431757 (Version 1)
Quarter: 2015Q3

REPORT INFORMATION
  Report Type: Spontaneous
  Country: BR (occurrence: BR)
  Receive Date: 20150828
  Receipt Date: 20150828
  Transmission Date: 20151125
  Serious: Yes (Disabling, Other)
  Sender: FDA-Public Use
  Company Number: BR-PFIZER INC-2015285107

PATIENT
  Age: 58 Year
  Sex: Male
  Weight: 80 kg

DRUGS (9)
  1. CYMBALTA [Concomitant]
     Active Substance: DULOXETINE HYDROCHLORIDE
     Indication: DEPRESSION
     Dosage: 1 TABLET (UNSPECIFIED DOSE), DAILY
  2. CRESTOR [Concomitant]
     Active Substance: ROSUVASTATIN CALCIUM
     Indication: BLOOD CHOLESTEROL INCREASED
     Dosage: 1 TABLET, DAILY
     Dates: start: 2011
  3. SOMALGIN CARDIO [Concomitant]
     Active Substance: ASPIRIN\DIHYDROXYALUMINUM AMINOACETATE ANHYDROUS\MAGNESIUM CARBONATE
     Indication: ANTICOAGULANT THERAPY
     Dosage: 1 TABLET (UNSPECIFIED DOSE), DAILY
     Dates: start: 2006
  4. LYRICA [Suspect]
     Active Substance: PREGABALIN
     Indication: FIBROMYALGIA
     Dosage: ONE ^TABLET^ (75 MG), DAILY
     Route: 048
  5. LORAX [Suspect]
     Active Substance: LORAZEPAM
     Indication: GENERALISED ANXIETY DISORDER
     Dosage: 2 TABLETS (4MG), 3X/DAY
     Route: 048
  6. CELEBRA [Suspect]
     Active Substance: CELECOXIB
     Indication: SPINAL DISORDER
     Dosage: ONE TABLET (200 MG), 2X/DAY
     Route: 048
  7. LYRICA [Suspect]
     Active Substance: PREGABALIN
     Dosage: ONE TABLET (75 MG), 2X/DAY
  8. LORAX [Suspect]
     Active Substance: LORAZEPAM
     Dosage: UNSPECIFIED DOSE, 4X/DAY (6 HOURS PER DAY)
  9. CYMBALTA [Concomitant]
     Active Substance: DULOXETINE HYDROCHLORIDE
     Indication: PAIN

REACTIONS (2)
  - Accident at home [Unknown]
  - Ankle fracture [Unknown]
